FAERS Safety Report 8033255-5 (Version None)
Quarter: 2012Q1

REPORT INFORMATION
  Report Type: 
  Country: None (occurrence: None)
  Receive Date: 20120110
  Receipt Date: 20120105
  Transmission Date: 20120608
  Serious: Yes (Death, Hospitalization)
  Sender: FDA-Public Use
  Company Number: IT-SANOFI-AVENTIS-2011SA081649

PATIENT
  Age: 73 Year
  Sex: Male

DRUGS (4)
  1. THERAPEUTIC RADIOPHARMACEUTICALS [Suspect]
     Dosage: AT A DOSE OF 5040 CGY WAS DELIVERED IN 28 DAILY FRACTIONS OF 1.8 GY, ON 5 CONSECUTIVE DAYS PER WEEK
     Route: 065
  2. OXALIPLATIN [Suspect]
     Dosage: FOR 2 HOURS
     Route: 042
     Dates: start: 20081106, end: 20081113
  3. FLUOROURACIL [Suspect]
     Route: 042
     Dates: start: 20081106, end: 20081113
  4. ANTINEOPLASTIC AGENTS [Suspect]
     Dosage: FOR 1 HOUR
     Route: 042
     Dates: start: 20081023, end: 20081106

REACTIONS (2)
  - DIARRHOEA [None]
  - DEHYDRATION [None]
